FAERS Safety Report 13696905 (Version 5)
Quarter: 2018Q2

REPORT INFORMATION
  Report Type: Spontaneous
  Country: US (occurrence: US)
  Receive Date: 20170628
  Receipt Date: 20180403
  Transmission Date: 20180711
  Serious: Yes (Hospitalization, Other)
  Sender: FDA-Public Use
  Company Number: US-ASTRAZENECA-2017SE65198

PATIENT
  Age: 17729 Day
  Sex: Female
  Weight: 62.6 kg

DRUGS (41)
  1. FARXIGA [Suspect]
     Active Substance: DAPAGLIFLOZIN PROPANEDIOL
     Indication: TYPE 2 DIABETES MELLITUS
     Route: 048
     Dates: start: 201501
  2. MELATONIN [Concomitant]
     Active Substance: MELATONIN
     Indication: SLEEP DISORDER
     Route: 048
  3. AVANDIA [Concomitant]
     Active Substance: ROSIGLITAZONE MALEATE
  4. MYCOSTATIN [Concomitant]
     Active Substance: NYSTATIN
     Dosage: 100000 UNIT/ML SUSPENSION
  5. MORPHINE INJECTION [Concomitant]
     Active Substance: MORPHINE
     Dosage: 100000 UNIT/ML SUSPENSION
  6. LOVENOX [Concomitant]
     Active Substance: ENOXAPARIN SODIUM
     Dosage: 100000 UNIT/ML SUSPENSION
  7. SENNA [Concomitant]
     Active Substance: SENNA LEAF\SENNOSIDES\SENNOSIDES A AND B
     Dosage: 100000 UNIT/ML SUSPENSION
  8. FARXIGA [Suspect]
     Active Substance: DAPAGLIFLOZIN PROPANEDIOL
     Indication: TYPE 2 DIABETES MELLITUS
     Dosage: 10 MG, UNKNOWN
     Route: 048
     Dates: start: 20150717
  9. LANTUS [Concomitant]
     Active Substance: INSULIN GLARGINE
     Indication: DIABETES MELLITUS
     Dosage: 100 UNIT/ML INJECTION, INJECT 100 UNITS INTO THE SKIN NIGHTLY.
     Dates: start: 20150715
  10. LINACLOTIDE/LINZESS [Concomitant]
     Indication: CONSTIPATION
     Route: 048
  11. PROTONIX [Concomitant]
     Active Substance: PANTOPRAZOLE SODIUM
     Indication: GASTROOESOPHAGEAL REFLUX DISEASE
     Route: 048
  12. EMPAGLIFLOZIN [Concomitant]
     Active Substance: EMPAGLIFLOZIN
     Dosage: JARDIANCE/GLYXAMBI/SYNJARDY
  13. NORVASC [Concomitant]
     Active Substance: AMLODIPINE BESYLATE
     Route: 048
  14. SUBLIMAZE [Concomitant]
     Active Substance: FENTANYL CITRATE
     Dosage: 100000 UNIT/ML SUSPENSION
  15. HUMULIN R [Concomitant]
     Active Substance: INSULIN HUMAN
     Dosage: 100000 UNIT/ML SUSPENSION
  16. FLEXERIL [Concomitant]
     Active Substance: CYCLOBENZAPRINE HYDROCHLORIDE
     Indication: FIBROMYALGIA
     Dosage: TAKE 0.5 TABLETS BY MOUTH NIGHTLY AS NEEDED
     Route: 048
     Dates: start: 2007
  17. METOPROLOL. [Concomitant]
     Active Substance: METOPROLOL
     Indication: HYPERTENSION
     Route: 048
     Dates: start: 2003
  18. ACTOS [Concomitant]
     Active Substance: PIOGLITAZONE HYDROCHLORIDE
     Dates: start: 1994
  19. FARXIGA [Suspect]
     Active Substance: DAPAGLIFLOZIN PROPANEDIOL
     Indication: TYPE 2 DIABETES MELLITUS
     Route: 048
     Dates: start: 201506, end: 201511
  20. VITAMIN D [Concomitant]
     Active Substance: CHOLECALCIFEROL
     Indication: VITAMIN SUPPLEMENTATION
     Dosage: TAKE 2,000 G BY MOUTH TWO TIMES DAILY AS NEEDED.
     Route: 048
     Dates: start: 20150717
  21. GABAPENTIN. [Concomitant]
     Active Substance: GABAPENTIN
     Indication: FIBROMYALGIA
     Route: 048
     Dates: start: 2014
  22. LANTUS [Concomitant]
     Active Substance: INSULIN GLARGINE
     Indication: DIABETES MELLITUS
     Dosage: 80 UNITS(40QAM AND 40 QPM)
     Dates: start: 20150716
  23. MILNACIPRAN/SAVELLA [Concomitant]
     Indication: FIBROMYALGIA
     Route: 048
     Dates: start: 2005, end: 2015
  24. METOPROLOL SUCCINATE. [Concomitant]
     Active Substance: METOPROLOL SUCCINATE
     Dates: start: 20150715
  25. NOVOLIN R [Concomitant]
     Active Substance: INSULIN HUMAN
     Dosage: 100000 UNIT/ML SUSPENSION
  26. INFLUENZA VACCINE [Concomitant]
     Active Substance: INFLUENZA VIRUS VACCINE
  27. NOVOLOG [Concomitant]
     Active Substance: INSULIN ASPART
     Indication: DIABETES MELLITUS
     Dosage: 100 UNIT/ML, INJECTION, INJECT 40 UNITS INTO THE SKIN THREE TIMES DAILY BEFORE MEALS.
     Dates: start: 1994
  28. LANTUS [Concomitant]
     Active Substance: INSULIN GLARGINE
     Indication: DIABETES MELLITUS
     Dosage: 50 UNITS/NIGHT
     Route: 058
     Dates: start: 1994
  29. SODIUM CHLORIDE. [Concomitant]
     Active Substance: SODIUM CHLORIDE
     Route: 048
  30. LIPITOR [Concomitant]
     Active Substance: ATORVASTATIN CALCIUM
     Indication: BLOOD CHOLESTEROL ABNORMAL
     Route: 048
     Dates: start: 20150717
  31. SEROQUEL [Concomitant]
     Active Substance: QUETIAPINE FUMARATE
     Indication: DEPRESSION
     Route: 048
  32. METFORMIN [Concomitant]
     Active Substance: METFORMIN HYDROCHLORIDE
     Indication: DIABETES MELLITUS
     Dosage: METFORMIN ER (GLUCOPHAGE-XR), 500 MG 24 HR TABLET, TAKE 2 TABLETS BY MOUTH TWO TIMES DAILY WITH M...
     Route: 048
     Dates: start: 2007, end: 2015
  33. METOPROLOL. [Concomitant]
     Active Substance: METOPROLOL
     Indication: HYPERTENSION
     Dosage: TOPROL-XL, 24 HR TABLET, TAKE 1 TABLET BY MOUTH DAILY.
     Route: 048
     Dates: start: 20150715
  34. ZOFRAN [Concomitant]
     Active Substance: ONDANSETRON HYDROCHLORIDE
     Dosage: 100000 UNIT/ML SUSPENSION
  35. LASIX [Concomitant]
     Active Substance: FUROSEMIDE
     Indication: OEDEMA
     Dosage: TAKE 1 TABLET BY MOUTH DAILY AS NEEDED
     Route: 048
     Dates: start: 2007
  36. METFORMIN [Concomitant]
     Active Substance: METFORMIN HYDROCHLORIDE
     Indication: DIABETES MELLITUS
     Dosage: GLUCOPHAGE, 500 MG TABLET, TAKE 500 MG BY MOUTH AFTER MEALS. 500 AT NOON,2500MG A DAY, TAKE 2 TAB...
     Route: 048
     Dates: start: 2007, end: 2015
  37. HUMALOG [Concomitant]
     Active Substance: INSULIN LISPRO
     Dosage: 100000 UNIT/ML SUSPENSION
     Route: 058
  38. REGLAN [Concomitant]
     Active Substance: METOCLOPRAMIDE HYDROCHLORIDE
     Dosage: 100000 UNIT/ML SUSPENSION
  39. FARXIGA [Suspect]
     Active Substance: DAPAGLIFLOZIN PROPANEDIOL
     Indication: TYPE 2 DIABETES MELLITUS
     Route: 048
     Dates: start: 201503, end: 201507
  40. VICODIN/LORTAB [Concomitant]
     Indication: PAIN
     Dosage: TAKE 2 TABLETS BY MOUTH EVERY 4 (FOUR) HOURS AS NEEDED
     Route: 048
     Dates: start: 2007
  41. COLACE [Concomitant]
     Active Substance: DOCUSATE SODIUM
     Dosage: 100000 UNIT/ML SUSPENSION

REACTIONS (9)
  - Diabetic ketoacidosis [Recovered/Resolved]
  - Urinary tract infection [Unknown]
  - Cystitis [Unknown]
  - Pancreatitis acute [Recovered/Resolved]
  - Diabetic neuropathy [Unknown]
  - Hyperlipidaemia [Unknown]
  - Renal injury [Unknown]
  - Urinary tract obstruction [Unknown]
  - Cholelithiasis [Unknown]

NARRATIVE: CASE EVENT DATE: 20150123
